FAERS Safety Report 4386229-X (Version None)
Quarter: 2004Q2

REPORT INFORMATION
  Report Type: 
  Country: None (occurrence: None)
  Receive Date: 20040629
  Receipt Date: 20031021
  Transmission Date: 20050107
  Serious: No
  Sender: FDA-Public Use
  Company Number: US-BRISTOL-MYERS SQUIBB COMPANY-12416848

PATIENT
  Age: 66 Year
  Sex: Male
  Weight: 68 kg

DRUGS (6)
  1. TESLAC [Suspect]
     Indication: GYNAECOMASTIA
     Route: 048
     Dates: start: 20010101
  2. ZANTAC [Concomitant]
  3. TESTOSTERONE [Concomitant]
  4. PROSCAR [Concomitant]
  5. MULTIVITAMIN [Concomitant]
  6. SYNTHROID [Concomitant]

REACTIONS (1)
  - TINNITUS [None]
